FAERS Safety Report 5643932-9 (Version None)
Quarter: 2008Q1

REPORT INFORMATION
  Report Type: 
  Country: None (occurrence: None)
  Receive Date: 20080226
  Receipt Date: 20080218
  Transmission Date: 20080703
  Serious: Yes (Other)
  Sender: FDA-Public Use
  Company Number: 2008004247

PATIENT
  Sex: Male

DRUGS (1)
  1. ZYRTEC [Suspect]
     Dosage: ORAL
     Route: 048
     Dates: start: 20080215

REACTIONS (1)
  - ANAPHYLACTIC REACTION [None]
